FAERS Safety Report 19946913 (Version 3)
Quarter: 2021Q4

REPORT INFORMATION
  Report Type: Spontaneous
  Country: US (occurrence: US)
  Receive Date: 20211012
  Receipt Date: 20211028
  Transmission Date: 20220303
  Serious: Yes (Death)
  Sender: FDA-Public Use
  Company Number: US-KARYOPHARM-2021KPT001236

PATIENT

DRUGS (14)
  1. XPOVIO [Suspect]
     Active Substance: SELINEXOR
     Indication: Plasma cell myeloma
     Dosage: 60 MG, WEEKLY
     Route: 048
     Dates: start: 20210913
  2. ASPIRIN [Concomitant]
     Active Substance: ASPIRIN
  3. ZOFRAN [Concomitant]
     Active Substance: ONDANSETRON HYDROCHLORIDE
  4. JANUMET [Concomitant]
     Active Substance: METFORMIN HYDROCHLORIDE\SITAGLIPTIN PHOSPHATE
  5. CRESTOR [Concomitant]
     Active Substance: ROSUVASTATIN CALCIUM
  6. DECADRON [Concomitant]
     Active Substance: DEXAMETHASONE
  7. PANTOPRAZOLE [Concomitant]
     Active Substance: PANTOPRAZOLE
  8. HYDROXYZINE [Concomitant]
     Active Substance: HYDROXYZINE HYDROCHLORIDE
  9. IMIPRAMINE [Concomitant]
     Active Substance: IMIPRAMINE
  10. STIOLTO RESPIMAT [Concomitant]
     Active Substance: OLODATEROL HYDROCHLORIDE\TIOTROPIUM BROMIDE MONOHYDRATE
  11. POMALYST [Concomitant]
     Active Substance: POMALIDOMIDE
  12. LORAZEPAM [Concomitant]
     Active Substance: LORAZEPAM
  13. REPAGLINIDE [Concomitant]
     Active Substance: REPAGLINIDE
  14. TAMSULOSIN [Concomitant]
     Active Substance: TAMSULOSIN

REACTIONS (2)
  - Death [Fatal]
  - Product dose omission issue [Unknown]

NARRATIVE: CASE EVENT DATE: 20210920
